FAERS Safety Report 23088902 (Version 1)
Quarter: 2023Q4

REPORT INFORMATION
  Report Type: Spontaneous
  Country: IL (occurrence: IL)
  Receive Date: 20231020
  Receipt Date: 20231020
  Transmission Date: 20240110
  Serious: Yes (Hospitalization, Other)
  Sender: FDA-Public Use
  Company Number: IL-QUAGEN-2023QUALIT00279

PATIENT
  Age: 75 Year
  Sex: Male

DRUGS (1)
  1. LEVETIRACETAM [Suspect]
     Active Substance: LEVETIRACETAM
     Indication: Product used for unknown indication
     Route: 065

REACTIONS (4)
  - Normal pressure hydrocephalus [Recovering/Resolving]
  - General physical health deterioration [Recovering/Resolving]
  - Cognitive disorder [Recovering/Resolving]
  - Gait disturbance [Recovering/Resolving]
